FAERS Safety Report 9788893 (Version 1)
Quarter: 2013Q4

REPORT INFORMATION
  Report Type: Spontaneous
  Country: US (occurrence: US)
  Receive Date: 20131230
  Receipt Date: 20131230
  Transmission Date: 20140711
  Serious: No
  Sender: FDA-Public Use
  Company Number: US-PFIZER INC-2013370015

PATIENT
  Age: 58 Year
  Sex: Male

DRUGS (1)
  1. BOSULIF [Suspect]
     Indication: CHRONIC MYELOID LEUKAEMIA
     Dosage: UNK
     Dates: start: 201302

REACTIONS (4)
  - Cytogenetic analysis abnormal [Unknown]
  - Fatigue [Unknown]
  - Vomiting [Unknown]
  - Weight decreased [Unknown]
